FAERS Safety Report 9465480 (Version 2)
Quarter: 2013Q3

REPORT INFORMATION
  Report Type: Spontaneous
  Country: JP (occurrence: JP)
  Receive Date: 20130820
  Receipt Date: 20130830
  Transmission Date: 20140515
  Serious: Yes (Hospitalization)
  Sender: FDA-Public Use
  Company Number: PHHY2013JP085872

PATIENT
  Age: 30 Year
  Sex: Female

DRUGS (4)
  1. DESFERAL [Suspect]
     Indication: TOXICITY TO VARIOUS AGENTS
     Dosage: 4000 MG, DAILY
     Route: 030
  2. DESFERAL [Suspect]
     Dosage: UNK UKN, UNK
     Route: 048
  3. FERROMIA [Suspect]
     Dosage: UNK
     Route: 048
  4. ACETAMINOPHEN [Concomitant]
     Dosage: UNK
     Route: 048

REACTIONS (9)
  - Drug-induced liver injury [Unknown]
  - Alanine aminotransferase increased [Unknown]
  - Aspartate aminotransferase increased [Unknown]
  - Blood bilirubin increased [Unknown]
  - Hepatic function abnormal [Recovered/Resolved]
  - Renal impairment [Recovered/Resolved]
  - Haematuria [Unknown]
  - Renal function test abnormal [Recovering/Resolving]
  - Blood creatinine increased [Unknown]
